FAERS Safety Report 7220452-1 (Version None)
Quarter: 2011Q1

REPORT INFORMATION
  Report Type: 
  Country: None (occurrence: None)
  Receive Date: 20110111
  Receipt Date: 20110103
  Transmission Date: 20110831
  Serious: Yes (Hospitalization, Other)
  Sender: FDA-Public Use
  Company Number: US-ASTRAZENECA-2011SE00127

PATIENT
  Age: 68 Year
  Sex: Female

DRUGS (8)
  1. SYMBICORT [Suspect]
     Indication: CHRONIC OBSTRUCTIVE PULMONARY DISEASE
     Dosage: TOTAL DAILY DOSE 160/4.5 MCG,TWO, TWICE DAILY
     Route: 055
     Dates: start: 20100101
  2. LASIX [Concomitant]
  3. PREDNISONE [Concomitant]
  4. ALBUTEROL [Concomitant]
  5. SYMBICORT [Suspect]
     Indication: BRONCHITIS
     Dosage: TOTAL DAILY DOSE 160/4.5 MCG,TWO, TWICE DAILY
     Route: 055
     Dates: start: 20100101
  6. VERAPAMIL [Concomitant]
  7. SPIRIVA [Concomitant]
  8. IPRATROPIUM BROMIDE [Concomitant]

REACTIONS (4)
  - BRONCHITIS [None]
  - SPINAL FRACTURE [None]
  - DYSPNOEA [None]
  - ANAEMIA [None]
